FAERS Safety Report 6441264-2 (Version None)
Quarter: 2009Q4

REPORT INFORMATION
  Report Type: 
  Country: None (occurrence: None)
  Receive Date: 20091116
  Receipt Date: 20091112
  Transmission Date: 20100525
  Serious: Yes (Death)
  Sender: FDA-Public Use
  Company Number: US-ELI_LILLY_AND_COMPANY-US200911003205

PATIENT
  Sex: Male

DRUGS (1)
  1. HUMALOG [Suspect]
     Dosage: 12 U, 3/D

REACTIONS (1)
  - DEATH [None]
